FAERS Safety Report 9606280 (Version 2)
Quarter: 2013Q4

REPORT INFORMATION
  Report Type: Spontaneous
  Country: US (occurrence: US)
  Receive Date: 20131008
  Receipt Date: 20131024
  Transmission Date: 20140711
  Serious: Yes (Other)
  Sender: FDA-Public Use
  Company Number: US-AMGEN-USASP2013047965

PATIENT
  Age: 60 Year
  Sex: Female

DRUGS (13)
  1. PROLIA [Suspect]
     Indication: OSTEOPOROSIS POSTMENOPAUSAL
     Dosage: UNK
     Route: 065
     Dates: start: 201207
  2. PROMETHAZINE [Concomitant]
     Dosage: 25 MG, UNK
  3. BACLOFEN [Concomitant]
     Dosage: 10 MG, QID
  4. CLONAZEPAM [Concomitant]
     Dosage: 1 MG, BID
  5. GABAPENTIN [Concomitant]
     Dosage: 900 MG, TID, HAS BEEN INCREASED OVER THE YEARS
  6. MORPHINE [Concomitant]
     Dosage: 45 MG, BID
  7. CENTRUM SILVER                     /02363801/ [Concomitant]
  8. CALCIUM [Concomitant]
     Dosage: 600 MG, BID
  9. VITAMIN D                          /00107901/ [Concomitant]
     Dosage: 50000 MON AND THUR
  10. FENTANYL [Concomitant]
  11. CENTRUM SILVER                     /02363801/ [Concomitant]
  12. VITAMIN D                          /00107901/ [Concomitant]
     Dosage: 50,000
  13. FENTANYL PCH [Concomitant]
     Dosage: 100 MUG, UNK

REACTIONS (6)
  - Mobility decreased [Unknown]
  - Pain [Unknown]
  - Asthenia [Unknown]
  - Neck pain [Unknown]
  - Scar pain [Unknown]
  - Arthralgia [Unknown]
